FAERS Safety Report 4546075-0 (Version None)
Quarter: 2005Q1

REPORT INFORMATION
  Report Type: 
  Country: None (occurrence: None)
  Receive Date: 20050105
  Receipt Date: 20050105
  Transmission Date: 20050727
  Serious: Yes (Life-Threatening)
  Sender: FDA-Public Use
  Company Number: None

PATIENT
  Age: 4 Year
  Sex: Female
  Weight: 79.3795 kg

DRUGS (3)
  1. XANAX [Suspect]
     Indication: MUSCLE RELAXANT THERAPY
     Dosage: 1 MG 6A DAY ORAL
     Route: 048
     Dates: start: 19991001, end: 20030807
  2. XANAX [Suspect]
     Indication: STRESS
     Dosage: 1 MG 6A DAY ORAL
     Route: 048
     Dates: start: 19991001, end: 20030807
  3. XANAX [Suspect]
     Dosage: 1 MG 4 A DAY ORAL
     Route: 048

REACTIONS (2)
  - AMNESIA [None]
  - GRAND MAL CONVULSION [None]
